FAERS Safety Report 13532679 (Version 1)
Quarter: 2017Q2

REPORT INFORMATION
  Report Type: Spontaneous
  Country: US (occurrence: US)
  Receive Date: 20170510
  Receipt Date: 20170510
  Transmission Date: 20170830
  Serious: No
  Sender: FDA-Public Use
  Company Number: US-PERRIGO-16US018119

PATIENT
  Age: 20 Year
  Sex: Female
  Weight: 51.7 kg

DRUGS (3)
  1. VENTOLIN HFA [Concomitant]
     Active Substance: ALBUTEROL SULFATE
     Indication: ASTHMA
     Dosage: UNK
     Route: 055
     Dates: start: 201602
  2. FAMOTIDINE. [Suspect]
     Active Substance: FAMOTIDINE
     Indication: HYPERCHLORHYDRIA
     Dosage: 10 MG, SINGLE AT 2300
     Route: 048
     Dates: start: 20160713, end: 20160713
  3. NORETHINDRONE ACETATE. [Concomitant]
     Active Substance: NORETHINDRONE ACETATE
     Indication: CONTRACEPTION
     Dosage: UNK
     Route: 065
     Dates: start: 201605

REACTIONS (5)
  - Nausea [Recovering/Resolving]
  - Dizziness [Recovering/Resolving]
  - Dyspnoea [Recovered/Resolved]
  - Abdominal pain [Not Recovered/Not Resolved]
  - Loss of consciousness [Recovered/Resolved]

NARRATIVE: CASE EVENT DATE: 20160713
